FAERS Safety Report 10921316 (Version 1)
Quarter: 2015Q1

REPORT INFORMATION
  Report Type: Spontaneous
  Country: US (occurrence: None)
  Receive Date: 20150313
  Receipt Date: 20150313
  Transmission Date: 20150721
  Serious: No
  Sender: FDA-Public Use
  Company Number: None

PATIENT
  Age: 42 Year
  Sex: Female

DRUGS (2)
  1. NITROFURANTOIN. [Concomitant]
     Active Substance: NITROFURANTOIN
  2. CAPECITABINE 500 MG, TEVA [Suspect]
     Active Substance: CAPECITABINE
     Indication: NEOPLASM MALIGNANT
     Dosage: 7 ON 7 OFF
     Route: 048
     Dates: start: 20140708

REACTIONS (4)
  - Bone pain [None]
  - Rash [None]
  - Palmar-plantar erythrodysaesthesia syndrome [None]
  - Fatigue [None]

NARRATIVE: CASE EVENT DATE: 201501
